FAERS Safety Report 19264354 (Version 1)
Quarter: 2021Q2

REPORT INFORMATION
  Report Type: Spontaneous
  Country: NO (occurrence: NO)
  Receive Date: 20210517
  Receipt Date: 20210517
  Transmission Date: 20210717
  Serious: Yes (Life-Threatening, Hospitalization, Other)
  Sender: FDA-Public Use
  Company Number: NO-GLAXOSMITHKLINE-NOCH2021028080

PATIENT
  Age: 54 Year
  Sex: Female

DRUGS (3)
  1. IBUX [Interacting]
     Active Substance: IBUPROFEN
     Indication: ANKYLOSING SPONDYLITIS
     Dosage: 200 MG, QD
     Route: 048
  2. VOLTAREN [Interacting]
     Active Substance: DICLOFENAC SODIUM
     Indication: ANKYLOSING SPONDYLITIS
     Dosage: 100 MG, QD
     Route: 054
     Dates: start: 20170101
  3. IBUX [Suspect]
     Active Substance: IBUPROFEN
     Indication: LIGAMENT SPRAIN
     Dosage: 600 MG, Q12H (USUALLY 200 MG PER DAY, BUT INCREASED TO 600MG X2 BECAUSE OF AN ANKLE SPRAIN)
     Route: 048

REACTIONS (1)
  - Gastric ulcer perforation [Unknown]

NARRATIVE: CASE EVENT DATE: 20210428
